FAERS Safety Report 8759439 (Version 2)
Quarter: 2013Q4

REPORT INFORMATION
  Report Type: Spontaneous
  Country: US (occurrence: US)
  Receive Date: 20120829
  Receipt Date: 20131101
  Transmission Date: 20140711
  Serious: No
  Sender: FDA-Public Use
  Company Number: US-009507513-1208USA001454

PATIENT
  Sex: Female

DRUGS (2)
  1. MIRALAX [Suspect]
     Indication: PRODUCT USED FOR UNKNOWN INDICATION
     Dosage: 17 G, UNKNOWN
     Route: 048
  2. MIRALAX [Suspect]
     Dosage: 8.5 G, QD
     Route: 048

REACTIONS (4)
  - Condition aggravated [Unknown]
  - Muscle spasms [Unknown]
  - Underdose [Unknown]
  - Incorrect drug administration duration [Unknown]
